FAERS Safety Report 11693990 (Version 1)
Quarter: 2015Q4

REPORT INFORMATION
  Report Type: Spontaneous
  Country: DE (occurrence: DE)
  Receive Date: 20151103
  Receipt Date: 20151103
  Transmission Date: 20160304
  Serious: Yes (Other)
  Sender: FDA-Public Use
  Company Number: GXKR2015DE004874

PATIENT
  Age: 46 Year
  Sex: Female
  Weight: 145 kg

DRUGS (1)
  1. IBU [Suspect]
     Active Substance: IBUPROFEN
     Indication: ARTHRALGIA
     Dosage: 400 MG, TID
     Route: 048
     Dates: start: 201508, end: 201508

REACTIONS (2)
  - Cystitis [Recovered/Resolved]
  - Renal colic [Recovered/Resolved]

NARRATIVE: CASE EVENT DATE: 201508
